FAERS Safety Report 6207050-3 (Version None)
Quarter: 2009Q2

REPORT INFORMATION
  Report Type: 
  Country: None (occurrence: None)
  Receive Date: 20090528
  Receipt Date: 20090519
  Transmission Date: 20091009
  Serious: Yes (Hospitalization)
  Sender: FDA-Public Use
  Company Number: US-BIOGENIDEC-2009BI003501

PATIENT
  Age: 35 Year
  Sex: Female

DRUGS (1)
  1. TYSABRI [Suspect]
     Indication: MULTIPLE SCLEROSIS
     Route: 042
     Dates: start: 20080709, end: 20081126

REACTIONS (8)
  - ANKLE FRACTURE [None]
  - CLUMSINESS [None]
  - DRUG INEFFECTIVE [None]
  - HYSTERECTOMY [None]
  - POSTOPERATIVE ABSCESS [None]
  - RESPIRATORY TRACT INFECTION [None]
  - SINUSITIS [None]
  - WHITE BLOOD CELL COUNT INCREASED [None]
